FAERS Safety Report 18556246 (Version 4)
Quarter: 2021Q1

REPORT INFORMATION
  Report Type: Spontaneous
  Country: US (occurrence: US)
  Receive Date: 20201128
  Receipt Date: 20210209
  Transmission Date: 20210419
  Serious: Yes (Hospitalization)
  Sender: FDA-Public Use
  Company Number: US-UNITED THERAPEUTICS-UNT-2020-018516

PATIENT
  Age: 20 Year
  Sex: Female
  Weight: 93.88 kg

DRUGS (1)
  1. REMODULIN [Suspect]
     Active Substance: TREPROSTINIL
     Indication: PULMONARY ARTERIAL HYPERTENSION
     Dosage: 0.093 ?G/KG, CONTINUING
     Route: 058
     Dates: start: 20201119

REACTIONS (8)
  - Infusion site irritation [Unknown]
  - Infusion site pain [Unknown]
  - Decreased appetite [Unknown]
  - Pain [Unknown]
  - Nausea [Unknown]
  - Muscular weakness [Unknown]
  - Infusion site erythema [Unknown]
  - Vomiting [Unknown]

NARRATIVE: CASE EVENT DATE: 200011
